FAERS Safety Report 4893524-4 (Version None)
Quarter: 2006Q1

REPORT INFORMATION
  Report Type: 
  Country: None (occurrence: None)
  Receive Date: 20060124
  Receipt Date: 20060111
  Transmission Date: 20060701
  Serious: Yes (Hospitalization, Other)
  Sender: FDA-Public Use
  Company Number: HQWYE311212JAN06

PATIENT
  Age: 60 Year
  Sex: Male

DRUGS (6)
  1. EFEXOR [Suspect]
     Dosage: 225 MG 1X PER 1 DAY
     Route: 048
  2. OLANZAPINE [Concomitant]
  3. MIRTAZAPINE [Concomitant]
  4. DIAZEPAM [Concomitant]
  5. CHLORPROMAZINE [Suspect]
     Dosage: 50 MG, AS NECESSARY; 100 MG IN THE MORNING, AND TOOK AN ADDITIONAL 100 MG
     Dates: start: 20050814, end: 20050814
  6. ZOLPIDEM TARTRATE [Concomitant]

REACTIONS (13)
  - BLOOD BICARBONATE DECREASED [None]
  - BLOOD CALCIUM DECREASED [None]
  - BLOOD CREATINE INCREASED [None]
  - BLOOD MAGNESIUM DECREASED [None]
  - CIRCULATORY COLLAPSE [None]
  - CONVULSION [None]
  - DYSPNOEA [None]
  - HYPOKALAEMIA [None]
  - HYPONATRAEMIA [None]
  - HYPOTENSION [None]
  - PALLOR [None]
  - PUPILS UNEQUAL [None]
  - TREMOR [None]
